FAERS Safety Report 15776552 (Version 3)
Quarter: 2019Q4

REPORT INFORMATION
  Report Type: Spontaneous
  Country: US (occurrence: US)
  Receive Date: 20181231
  Receipt Date: 20191226
  Transmission Date: 20200122
  Serious: No
  Sender: FDA-Public Use
  Company Number: US-PFIZER INC-2018530571

PATIENT
  Age: 56 Year
  Sex: Female
  Weight: 64.85 kg

DRUGS (1)
  1. LYRICA [Suspect]
     Active Substance: PREGABALIN
     Indication: POST LAMINECTOMY SYNDROME
     Dosage: 100 MG, 3X/DAY
     Route: 048

REACTIONS (2)
  - Malaise [Unknown]
  - Withdrawal syndrome [Unknown]
